FAERS Safety Report 24054093 (Version 1)
Quarter: 2024Q3

REPORT INFORMATION
  Report Type: Report from Study
  Country: CN (occurrence: CN)
  Receive Date: 20240705
  Receipt Date: 20240705
  Transmission Date: 20241017
  Serious: Yes (Other)
  Sender: ROCHE
  Company Number: CN-ROCHE-10000007866

PATIENT

DRUGS (2)
  1. TOCILIZUMAB [Suspect]
     Active Substance: TOCILIZUMAB
     Indication: Still^s disease
     Dosage: WEIGHT LESS THAN 30 KG; 12 MG/KG, WEIGHT GREATER THAN OR EQUAL TO 30 KG; 8 MG/KG EVERY 2 WEEKS FOR 6
     Route: 042
  2. METHOTREXATE [Concomitant]
     Active Substance: METHOTREXATE
     Dosage: 10.91 +/- 1.85 MG/M2 PER WEEK

REACTIONS (41)
  - Upper respiratory tract infection [Recovering/Resolving]
  - Bronchitis [Recovering/Resolving]
  - Gastroenteritis [Recovering/Resolving]
  - Urinary tract infection [Recovering/Resolving]
  - Nasopharyngitis [Recovering/Resolving]
  - Paronychia [Recovering/Resolving]
  - Alanine aminotransferase increased [Recovering/Resolving]
  - Dyslipidaemia [Recovering/Resolving]
  - Blood cholesterol increased [Recovering/Resolving]
  - Blood triglycerides increased [Recovering/Resolving]
  - High density lipoprotein increased [Recovering/Resolving]
  - Neutrophil count decreased [Recovering/Resolving]
  - White blood cell count decreased [Recovering/Resolving]
  - Weight increased [Recovering/Resolving]
  - Rash [Recovering/Resolving]
  - Pruritus [Recovering/Resolving]
  - Urticaria [Recovering/Resolving]
  - Abdominal pain [Recovering/Resolving]
  - Diarrhoea [Recovering/Resolving]
  - Vomiting [Recovering/Resolving]
  - Mouth ulceration [Recovering/Resolving]
  - Hypertension [Recovering/Resolving]
  - Dizziness [Recovering/Resolving]
  - Headache [Recovering/Resolving]
  - Cough [Recovering/Resolving]
  - Dyspnoea [Recovering/Resolving]
  - Noninfective conjunctivitis [Recovering/Resolving]
  - Asthenia [Recovering/Resolving]
  - Soft tissue infection [Recovering/Resolving]
  - Pneumonia [Recovering/Resolving]
  - Varicella [Recovering/Resolving]
  - Hand-foot-and-mouth disease [Recovering/Resolving]
  - Infusion related reaction [Recovering/Resolving]
  - Haemophagocytic lymphohistiocytosis [Recovering/Resolving]
  - Anaphylactic shock [Recovering/Resolving]
  - Hypersensitivity [Recovering/Resolving]
  - Pyrexia [Recovering/Resolving]
  - Cytopenia [Recovering/Resolving]
  - Impetigo [Recovering/Resolving]
  - Fatigue [Recovering/Resolving]
  - Infection [Recovering/Resolving]
